FAERS Safety Report 20778890 (Version 1)
Quarter: 2022Q2

REPORT INFORMATION
  Report Type: Spontaneous
  Country: US (occurrence: US)
  Receive Date: 20220503
  Receipt Date: 20220503
  Transmission Date: 20220721
  Serious: Yes (Hospitalization, Other)
  Sender: FDA-Public Use
  Company Number: US-SAMSUNG BIOEPIS-SB-2022-10316

PATIENT
  Age: 12 Year
  Sex: Female

DRUGS (1)
  1. INFLIXIMAB [Suspect]
     Active Substance: INFLIXIMAB
     Indication: Crohn^s disease
     Dosage: UNKNOWN
     Route: 065

REACTIONS (7)
  - Sinusitis [Recovered/Resolved]
  - Actinomycosis [Recovered/Resolved]
  - Cellulitis orbital [Recovered/Resolved]
  - Subperiosteal abscess [Recovered/Resolved]
  - Dacryocystitis [Recovered/Resolved]
  - Immunodeficiency [Unknown]
  - Toothache [Unknown]
